APPROVED DRUG PRODUCT: BERUBIGEN
Active Ingredient: CYANOCOBALAMIN
Strength: 1MG/ML
Dosage Form/Route: INJECTABLE;INJECTION
Application: N006798 | Product #001
Applicant: PHARMACIA AND UPJOHN CO
Approved: Approved Prior to Jan 1, 1982 | RLD: No | RS: No | Type: DISCN